FAERS Safety Report 5466321-9 (Version None)
Quarter: 2007Q3

REPORT INFORMATION
  Report Type: 
  Country: None (occurrence: None)
  Receive Date: 20070920
  Receipt Date: 20070906
  Transmission Date: 20080115
  Serious: Yes (Death)
  Sender: FDA-Public Use
  Company Number: 2007EN000087

PATIENT
  Sex: Male

DRUGS (2)
  1. ABELCET [Suspect]
     Indication: DRUG USE FOR UNKNOWN INDICATION
  2. ARANESP [Suspect]
     Indication: DRUG USE FOR UNKNOWN INDICATION

REACTIONS (7)
  - CHILLS [None]
  - DIALYSIS [None]
  - FLUID OVERLOAD [None]
  - INFUSION RELATED REACTION [None]
  - NEPHROPATHY TOXIC [None]
  - RENAL FAILURE ACUTE [None]
  - SHOCK [None]
